FAERS Safety Report 24696612 (Version 2)
Quarter: 2024Q4

REPORT INFORMATION
  Report Type: Spontaneous
  Country: US (occurrence: US)
  Receive Date: 20241204
  Receipt Date: 20241209
  Transmission Date: 20250114
  Serious: Yes (Other)
  Sender: ROCHE
  Company Number: US-ROCHE-10000147358

PATIENT
  Age: 24 Year
  Sex: Female

DRUGS (1)
  1. XOLAIR [Suspect]
     Active Substance: OMALIZUMAB
     Indication: Urticaria
     Dosage: DOSE: 300/2 MG/ML
     Route: 058
     Dates: start: 20241115, end: 20241202

REACTIONS (1)
  - Injection site reaction [Recovered/Resolved]

NARRATIVE: CASE EVENT DATE: 20241115
